FAERS Safety Report 8370622-4 (Version None)
Quarter: 2012Q2

REPORT INFORMATION
  Report Type: 
  Country: None (occurrence: None)
  Receive Date: 20120518
  Receipt Date: 20120507
  Transmission Date: 20120825
  Serious: Yes (Disabling, Other)
  Sender: FDA-Public Use
  Company Number: US-ELI_LILLY_AND_COMPANY-US201112001001

PATIENT
  Sex: Male

DRUGS (4)
  1. HUMULIN 70/30 [Suspect]
     Indication: TYPE 1 DIABETES MELLITUS
     Dosage: UNK, UNKNOWN
     Route: 065
  2. HUMULIN N [Suspect]
     Indication: TYPE 1 DIABETES MELLITUS
     Dosage: 15 U AM, 10 U PM
     Route: 065
  3. HUMULIN N [Suspect]
     Dosage: 15 U AM, 10 U PM
     Route: 065
  4. HUMULIN R [Suspect]
     Indication: TYPE 1 DIABETES MELLITUS
     Dosage: UNK UNK, PRN

REACTIONS (10)
  - LUNG NEOPLASM MALIGNANT [None]
  - BLOOD GLUCOSE FLUCTUATION [None]
  - WOUND [None]
  - DIABETES MELLITUS [None]
  - MEDICATION ERROR [None]
  - BLADDER CANCER [None]
  - BLOOD GLUCOSE INCREASED [None]
  - BLOOD GLUCOSE DECREASED [None]
  - HAEMORRHAGE URINARY TRACT [None]
  - HYPOACUSIS [None]
